FAERS Safety Report 7103237-6 (Version None)
Quarter: 2010Q4

REPORT INFORMATION
  Report Type: 
  Country: None (occurrence: None)
  Receive Date: 20101115
  Receipt Date: 20101108
  Transmission Date: 20110411
  Serious: Yes (Other)
  Sender: FDA-Public Use
  Company Number: US-SANOFI-AVENTIS-2010SA068576

PATIENT
  Sex: Male

DRUGS (3)
  1. LANTUS [Suspect]
     Dosage: DOSE:20 UNIT(S)
     Route: 058
     Dates: start: 20080101
  2. SOLOSTAR [Suspect]
     Dates: start: 20080101
  3. JANUVIA [Concomitant]
     Route: 048

REACTIONS (2)
  - PARKINSON'S DISEASE [None]
  - TREMOR [None]
